FAERS Safety Report 25638306 (Version 1)
Quarter: 2025Q3

REPORT INFORMATION
  Report Type: Spontaneous
  Country: US (occurrence: None)
  Receive Date: 20250801
  Receipt Date: 20250801
  Transmission Date: 20251021
  Serious: Yes (Hospitalization)
  Sender: FDA-CTU
  Company Number: None

PATIENT
  Sex: Male

DRUGS (7)
  1. PROCRIT [Suspect]
     Active Substance: ERYTHROPOIETIN
     Indication: Chronic kidney disease
     Dosage: INJECT 1 ML UNDER THE SKIN EVERY 2 WEEKS AFTER BEING ADVISED BY NURSE
     Route: 058
     Dates: start: 20250110
  2. FENTANYL [Concomitant]
     Active Substance: FENTANYL
  3. FISH OIL [Concomitant]
     Active Substance: FISH OIL
  4. HYDROXYUREA [Concomitant]
     Active Substance: HYDROXYUREA
  5. LISINOPRIL [Concomitant]
     Active Substance: LISINOPRIL
  6. LOKELMA [Concomitant]
     Active Substance: SODIUM ZIRCONIUM CYCLOSILICATE
  7. METOPROL SUC [Concomitant]

REACTIONS (1)
  - Hospitalisation [None]
